FAERS Safety Report 15902061 (Version 1)
Quarter: 2019Q1

REPORT INFORMATION
  Report Type: Other
  Country: GB (occurrence: GB)
  Receive Date: 20190201
  Receipt Date: 20190201
  Transmission Date: 20190417
  Serious: Yes (Hospitalization)
  Sender: FDA-Public Use
  Company Number: GB-HERITAGE PHARMACEUTICALS-2018HTG00355

PATIENT
  Age: 85 Year
  Sex: Female

DRUGS (6)
  1. ALVERINE [Concomitant]
     Active Substance: ALVERINE
     Dosage: 1-2 CAPSULES UP TO THREE TIMES A DAY IF REQUIRED.; AS REQUIRED
     Route: 048
     Dates: start: 20170406
  2. AMITRIPTYLINE [Concomitant]
     Active Substance: AMITRIPTYLINE
     Dosage: 10 MG, 1X/DAY
     Route: 048
     Dates: start: 20180427, end: 20180501
  3. ACYCLOVIR. [Suspect]
     Active Substance: ACYCLOVIR
     Indication: HERPES ZOSTER
     Dosage: 610 MG
     Route: 042
  4. PARACETAMOL [Concomitant]
     Active Substance: ACETAMINOPHEN
     Dosage: 1 G
     Route: 048
     Dates: start: 20171026
  5. ACYCLOVIR. [Suspect]
     Active Substance: ACYCLOVIR
     Indication: VASCULITIS
     Dosage: 4000 MG, 1X/DAY (FIVE TIMES DAILY FOR SHINGLES)
     Route: 048
     Dates: start: 20180427, end: 20180501
  6. LAXIDO [Concomitant]
     Active Substance: POLYETHYLENE GLYCOL 3350\POTASSIUM CHLORIDE\SODIUM BICARBONATE\SODIUM CHLORIDE
     Dosage: 13.7 G
     Dates: start: 20150326

REACTIONS (7)
  - Pallor [Recovering/Resolving]
  - Urticaria [Recovering/Resolving]
  - Skin lesion [Unknown]
  - Pruritus [Unknown]
  - Visual impairment [Unknown]
  - Erythema [Recovering/Resolving]
  - Lethargy [Unknown]

NARRATIVE: CASE EVENT DATE: 20180501
